FAERS Safety Report 15261701 (Version 3)
Quarter: 2019Q1

REPORT INFORMATION
  Report Type: Spontaneous
  Country: US (occurrence: US)
  Receive Date: 20180809
  Receipt Date: 20190130
  Transmission Date: 20190417
  Serious: Yes (Other)
  Sender: FDA-Public Use
  Company Number: US-DSJP-DSU-2016-122758

PATIENT

DRUGS (5)
  1. BENICAR HCT [Suspect]
     Active Substance: HYDROCHLOROTHIAZIDE\OLMESARTAN MEDOXOMIL
     Dosage: 40MG/12.5MG , QD
     Route: 048
     Dates: start: 201103, end: 201202
  2. BENICAR [Suspect]
     Active Substance: OLMESARTAN MEDOXOMIL
     Indication: HYPERTENSION
     Dosage: 40 MG, QD
     Route: 048
     Dates: start: 200804, end: 201103
  3. BENICAR HCT [Suspect]
     Active Substance: HYDROCHLOROTHIAZIDE\OLMESARTAN MEDOXOMIL
     Indication: ESSENTIAL HYPERTENSION
     Dosage: UNK
     Dates: start: 20070925
  4. HYDROCHLOROTHIAZIDE. [Concomitant]
     Active Substance: HYDROCHLOROTHIAZIDE
     Indication: PRODUCT USED FOR UNKNOWN INDICATION
     Dosage: 25 MG, QD
     Route: 048
  5. BENICAR HCT [Suspect]
     Active Substance: HYDROCHLOROTHIAZIDE\OLMESARTAN MEDOXOMIL
     Dosage: 40/25MG , QD
     Route: 048
     Dates: end: 201502

REACTIONS (8)
  - Hiatus hernia [Unknown]
  - Incarcerated hernia [Recovered/Resolved]
  - Diverticulum [Unknown]
  - Inguinal hernia [Not Recovered/Not Resolved]
  - Sprue-like enteropathy [Recovering/Resolving]
  - Large intestine polyp [Recovered/Resolved]
  - Haemorrhoids [Not Recovered/Not Resolved]
  - Irritable bowel syndrome [Unknown]

NARRATIVE: CASE EVENT DATE: 20070926
